FAERS Safety Report 12622466 (Version 1)
Quarter: 2016Q3

REPORT INFORMATION
  Report Type: Spontaneous
  Country: US (occurrence: US)
  Receive Date: 20160804
  Receipt Date: 20160804
  Transmission Date: 20161109
  Serious: Yes (Death)
  Sender: FDA-Public Use
  Company Number: PHEH2016US019368

PATIENT
  Sex: Female

DRUGS (1)
  1. TYKERB [Suspect]
     Active Substance: LAPATINIB DITOSYLATE
     Indication: METASTASES TO BONE
     Dosage: 5 DF, QD (FOR 21 DAYS)
     Route: 048
     Dates: start: 20160708

REACTIONS (2)
  - Death [Fatal]
  - Product use issue [Unknown]
